FAERS Safety Report 5450488-2 (Version None)
Quarter: 2007Q3

REPORT INFORMATION
  Report Type: 
  Country: None (occurrence: None)
  Receive Date: 20070806
  Receipt Date: 20070619
  Transmission Date: 20080115
  Serious: Yes (Other)
  Sender: FDA-Public Use
  Company Number: 38315

PATIENT
  Sex: Female
  Weight: 59.4212 kg

DRUGS (1)
  1. MIDAZOLAM HCL [Suspect]
     Indication: SEDATION
     Dosage: 5MG TOTAL OVER 1 HOUR
     Dates: start: 20070613

REACTIONS (1)
  - DRUG INEFFECTIVE [None]
